FAERS Safety Report 7440546-5 (Version None)
Quarter: 2011Q2

REPORT INFORMATION
  Report Type: 
  Country: None (occurrence: None)
  Receive Date: 20110427
  Receipt Date: 20110420
  Transmission Date: 20111010
  Serious: Yes (Other)
  Sender: FDA-Public Use
  Company Number: A0910223A

PATIENT
  Age: 75 Year
  Sex: Male
  Weight: 106.8 kg

DRUGS (3)
  1. SYMBICORT [Concomitant]
     Route: 055
     Dates: start: 20100401
  2. ADVAIR DISKUS 100/50 [Suspect]
     Indication: ASTHMA
     Dosage: 1PUFF TWICE PER DAY
     Route: 055
     Dates: start: 20100801
  3. COMBIVENT [Concomitant]
     Indication: ASTHMA
     Dosage: 2PUFF FOUR TIMES PER DAY
     Route: 055
     Dates: start: 20100401

REACTIONS (8)
  - ASTHMA EXERCISE INDUCED [None]
  - CHEST DISCOMFORT [None]
  - ACTIVITIES OF DAILY LIVING IMPAIRED [None]
  - PRODUCT QUALITY ISSUE [None]
  - THERAPEUTIC RESPONSE DECREASED [None]
  - DYSPNOEA [None]
  - DYSPNOEA EXERTIONAL [None]
  - CHEST PAIN [None]
